FAERS Safety Report 13686666 (Version 1)
Quarter: 2017Q2

REPORT INFORMATION
  Report Type: Spontaneous
  Country: GB (occurrence: GB)
  Receive Date: 20170623
  Receipt Date: 20170623
  Transmission Date: 20170830
  Serious: Yes (Other)
  Sender: FDA-Public Use
  Company Number: GB-SA-2017SA110012

PATIENT
  Age: 5 Year
  Sex: Male

DRUGS (1)
  1. MYOZYME [Suspect]
     Active Substance: ALGLUCOSIDASE ALFA
     Route: 041

REACTIONS (3)
  - Device dislocation [Unknown]
  - Infusion site pain [Unknown]
  - Infusion site erythema [Unknown]

NARRATIVE: CASE EVENT DATE: 20170614
